FAERS Safety Report 9339492 (Version 1)
Quarter: 2013Q2

REPORT INFORMATION
  Report Type: Spontaneous
  Country: FR (occurrence: FR)
  Receive Date: 20130610
  Receipt Date: 20130610
  Transmission Date: 20140414
  Serious: Yes (Hospitalization)
  Sender: FDA-Public Use
  Company Number: FR-SANOFI-AVENTIS-2013SA054545

PATIENT
  Age: 50 Year
  Sex: Male

DRUGS (5)
  1. RIFINAH [Suspect]
     Indication: PRODUCT USED FOR UNKNOWN INDICATION
     Route: 065
     Dates: start: 20130116
  2. VELMETIA [Suspect]
     Indication: DIABETES MELLITUS
     Route: 065
     Dates: end: 20130122
  3. GLIMEPIRIDE [Suspect]
     Indication: DIABETES MELLITUS
     Route: 065
  4. GLIMEPIRIDE [Suspect]
     Indication: DIABETES MELLITUS
     Route: 065
  5. METFORMIN [Suspect]
     Indication: DIABETES MELLITUS
     Route: 065

REACTIONS (3)
  - Hypoglycaemia [Recovered/Resolved]
  - Erythema [Recovered/Resolved]
  - Hot flush [Recovered/Resolved]
